FAERS Safety Report 21507572 (Version 1)
Quarter: 2022Q4

REPORT INFORMATION
  Report Type: Spontaneous
  Country: US (occurrence: US)
  Receive Date: 20221026
  Receipt Date: 20221026
  Transmission Date: 20230113
  Serious: No
  Sender: FDA-Public Use
  Company Number: US-ELI_LILLY_AND_COMPANY-US202210008371

PATIENT
  Sex: Male

DRUGS (4)
  1. TALTZ [Suspect]
     Active Substance: IXEKIZUMAB
     Indication: Psoriasis
     Dosage: UNK UNK, OTHER (EVERY 28 DAYS)
     Route: 065
     Dates: start: 2019
  2. TALTZ [Suspect]
     Active Substance: IXEKIZUMAB
     Indication: Psoriasis
     Dosage: UNK UNK, OTHER (EVERY 28 DAYS)
     Route: 065
     Dates: start: 2019
  3. TALTZ [Suspect]
     Active Substance: IXEKIZUMAB
     Dosage: UNK UNK, OTHER (EVERY 28 DAYS)
     Route: 065
  4. TALTZ [Suspect]
     Active Substance: IXEKIZUMAB
     Dosage: UNK UNK, OTHER (EVERY 28 DAYS)
     Route: 065

REACTIONS (3)
  - Psoriasis [Unknown]
  - Injection site pain [Unknown]
  - Injection site haemorrhage [Unknown]
